FAERS Safety Report 12310990 (Version 1)
Quarter: 2016Q2

REPORT INFORMATION
  Report Type: Spontaneous
  Country: US (occurrence: US)
  Receive Date: 20160427
  Receipt Date: 20160427
  Transmission Date: 20160815
  Serious: No
  Sender: FDA-Public Use
  Company Number: US-MEDA-2016040060

PATIENT
  Age: 62 Year
  Sex: Male
  Weight: 103 kg

DRUGS (4)
  1. AEROSPAN [Suspect]
     Active Substance: FLUNISOLIDE
     Indication: ASTHMA
     Route: 048
     Dates: start: 201603, end: 201603
  2. AEROSPAN [Suspect]
     Active Substance: FLUNISOLIDE
     Indication: ASTHMA
     Route: 048
     Dates: start: 201603, end: 201603
  3. AEROSPAN [Suspect]
     Active Substance: FLUNISOLIDE
     Indication: ASTHMA
     Route: 048
     Dates: start: 201602, end: 201603
  4. AEROSPAN [Suspect]
     Active Substance: FLUNISOLIDE
     Indication: ASTHMA
     Route: 048
     Dates: start: 20160401, end: 201604

REACTIONS (5)
  - Dyspnoea [Unknown]
  - Wheezing [Unknown]
  - Bronchospasm [Recovered/Resolved]
  - Incorrect dose administered [Recovered/Resolved]
  - Chest discomfort [Recovered/Resolved]

NARRATIVE: CASE EVENT DATE: 2016
